FAERS Safety Report 8780361 (Version 1)
Quarter: 2012Q4

REPORT INFORMATION
  Report Type: Spontaneous
  Country: US (occurrence: None)
  Receive Date: 20120905
  Receipt Date: 20120905
  Transmission Date: 20130627
  Serious: Yes (Other)
  Sender: FDA-Public Use
  Company Number: None

PATIENT
  Age: 63 Year
  Sex: Male
  Weight: 113.4 kg

DRUGS (1)
  1. MICARDIS [Suspect]
     Dosage: 1x per day
     Dates: start: 20111128, end: 201206

REACTIONS (3)
  - Tachycardia [None]
  - Anxiety [None]
  - Wrong technique in drug usage process [None]
